FAERS Safety Report 20721227 (Version 1)
Quarter: 2022Q2

REPORT INFORMATION
  Report Type: Spontaneous
  Country: JP (occurrence: JP)
  Receive Date: 20220418
  Receipt Date: 20220418
  Transmission Date: 20220721
  Serious: Yes (Other)
  Sender: FDA-Public Use
  Company Number: JP-LUPIN PHARMACEUTICALS INC.-2022-05718

PATIENT
  Age: 56 Year
  Sex: Male

DRUGS (7)
  1. LANSOPRAZOLE [Interacting]
     Active Substance: LANSOPRAZOLE
     Indication: Gastrooesophageal reflux disease
     Dosage: 30 MG, QD
     Route: 065
  2. LANSOPRAZOLE [Interacting]
     Active Substance: LANSOPRAZOLE
     Dosage: 30 MG (RESUMED TREATMENT DOSE)
     Route: 065
  3. BOSENTAN [Interacting]
     Active Substance: BOSENTAN
     Indication: Systemic scleroderma
     Dosage: 62.5 MG, BID
     Route: 065
  4. BOSENTAN [Interacting]
     Active Substance: BOSENTAN
     Dosage: 125 MG, BID (MAINTENANCE DOSE)
     Route: 065
  5. BOSENTAN [Interacting]
     Active Substance: BOSENTAN
     Dosage: 62.5 MG, QD
     Route: 065
  6. BOSENTAN [Interacting]
     Active Substance: BOSENTAN
     Dosage: 62.5 MG, BID
     Route: 065
  7. VONOPRAZAN FUMARATE [Interacting]
     Active Substance: VONOPRAZAN FUMARATE
     Indication: Gastrooesophageal reflux disease
     Dosage: UNK
     Route: 065

REACTIONS (2)
  - Hepatotoxicity [Recovered/Resolved]
  - Drug interaction [Unknown]
